FAERS Safety Report 13298184 (Version 2)
Quarter: 2017Q1

REPORT INFORMATION
  Report Type: Spontaneous
  Country: AU (occurrence: AU)
  Receive Date: 20170306
  Receipt Date: 20170310
  Transmission Date: 20170428
  Serious: Yes (Hospitalization, Other)
  Sender: FDA-Public Use
  Company Number: AU-ASTRAZENECA-2017SE23780

PATIENT
  Age: 81 Year
  Sex: Female

DRUGS (1)
  1. BRIMICA GENUAIR [Suspect]
     Active Substance: ACLIDINIUM BROMIDE\FORMOTEROL FUMARATE
     Route: 055
     Dates: start: 201611

REACTIONS (3)
  - Ulcer haemorrhage [Recovering/Resolving]
  - Device malfunction [Unknown]
  - Infection [Unknown]

NARRATIVE: CASE EVENT DATE: 2017
